APPROVED DRUG PRODUCT: DEXAMETHASONE SODIUM PHOSPHATE
Active Ingredient: DEXAMETHASONE SODIUM PHOSPHATE
Strength: EQ 0.1% PHOSPHATE
Dosage Form/Route: SOLUTION/DROPS;OPHTHALMIC, OTIC
Application: A040069 | Product #001
Applicant: BAUSCH AND LOMB PHARMACEUTICALS INC
Approved: Jul 26, 1996 | RLD: No | RS: Yes | Type: RX